FAERS Safety Report 5793354-5 (Version None)
Quarter: 2008Q2

REPORT INFORMATION
  Report Type: 
  Country: None (occurrence: None)
  Receive Date: 20080627
  Receipt Date: 20080623
  Transmission Date: 20081010
  Serious: Yes (Life-Threatening, Hospitalization)
  Sender: FDA-Public Use
  Company Number: B0520897A

PATIENT
  Age: 49 Year
  Sex: Male

DRUGS (2)
  1. NABUMETONE [Suspect]
     Indication: TORTICOLLIS
     Dosage: 1G PER DAY
     Route: 048
     Dates: start: 20080510, end: 20080511
  2. ASPIRIN [Suspect]
     Indication: TORTICOLLIS
     Dosage: 1G PER DAY
     Route: 048
     Dates: start: 20080510, end: 20080510

REACTIONS (8)
  - ANAPHYLACTIC SHOCK [None]
  - ANGIOEDEMA [None]
  - BLOOD PRESSURE DECREASED [None]
  - CIRCULATORY COLLAPSE [None]
  - FACE OEDEMA [None]
  - LARYNGEAL OEDEMA [None]
  - PHARYNGEAL OEDEMA [None]
  - PRURITUS GENERALISED [None]
